FAERS Safety Report 4737420-1 (Version None)
Quarter: 2005Q3

REPORT INFORMATION
  Report Type: 
  Country: None (occurrence: None)
  Receive Date: 20050805
  Receipt Date: 20050719
  Transmission Date: 20060218
  Serious: No
  Sender: FDA-Public Use
  Company Number: PAR_0145_2005

PATIENT
  Age: 51 Year
  Sex: Female
  Weight: 89.3586 kg

DRUGS (5)
  1. MEGESTROL ACETATE [Suspect]
     Indication: ENDOMETRIAL SARCOMA
     Dosage: 40 MG BID PO
     Route: 048
     Dates: start: 20040201
  2. NAPROXEN [Concomitant]
  3. FLONASE [Concomitant]
  4. COSOPT [Concomitant]
  5. LUMIGAN [Concomitant]

REACTIONS (3)
  - BLOOD PRESSURE INCREASED [None]
  - INTRAOCULAR PRESSURE INCREASED [None]
  - WEIGHT INCREASED [None]
